FAERS Safety Report 18177023 (Version 4)
Quarter: 2020Q3

REPORT INFORMATION
  Report Type: Report from Study
  Country: US (occurrence: US)
  Receive Date: 20200820
  Receipt Date: 20200904
  Transmission Date: 20201103
  Serious: No
  Sender: FDA-Public Use
  Company Number: NVSC2020US229645

PATIENT
  Sex: Female

DRUGS (1)
  1. ENTRESTO [Suspect]
     Active Substance: SACUBITRIL\VALSARTAN
     Indication: COUGH
     Dosage: 50 MG, BID (24.26 MG)
     Route: 048

REACTIONS (2)
  - Product use in unapproved indication [Unknown]
  - Cough [Not Recovered/Not Resolved]
